FAERS Safety Report 20576627 (Version 1)
Quarter: 2022Q1

REPORT INFORMATION
  Report Type: Spontaneous
  Country: IE (occurrence: IE)
  Receive Date: 20220310
  Receipt Date: 20220310
  Transmission Date: 20220424
  Serious: Yes (Hospitalization)
  Sender: FDA-Public Use
  Company Number: None

PATIENT
  Age: 79 Year
  Sex: Female
  Weight: 65 kg

DRUGS (8)
  1. EPLERENONE [Suspect]
     Active Substance: EPLERENONE
     Indication: Cardiac failure
     Dosage: 25 MG, Q24H
     Route: 048
     Dates: start: 20220201, end: 20220218
  2. PERINDOPRIL [Concomitant]
     Active Substance: PERINDOPRIL
     Indication: Cardiac failure
     Dosage: 10 MG, Q24H
     Route: 065
     Dates: start: 20211001, end: 20220218
  3. INDAPAMIDE [Concomitant]
     Active Substance: INDAPAMIDE
     Indication: Cardiac failure
     Dosage: 2.5 MG, Q24H
     Route: 065
     Dates: start: 20211001, end: 20220218
  4. FEBUXOSTAT [Concomitant]
     Active Substance: FEBUXOSTAT
     Indication: Hyperuricaemia
     Dosage: 80 MG, Q24H
     Route: 065
     Dates: start: 20211001, end: 20220218
  5. CLOPIDOGREL [Concomitant]
     Active Substance: CLOPIDOGREL BISULFATE
     Indication: Product used for unknown indication
     Dosage: 75 MG, Q24H
     Route: 065
     Dates: start: 20211001, end: 20220218
  6. ASPIRIN [Concomitant]
     Active Substance: ASPIRIN
     Indication: Product used for unknown indication
     Dosage: 75 MG, Q24H
     Route: 065
     Dates: start: 20211001, end: 20220218
  7. AMIODARONE HYDROCHLORIDE [Concomitant]
     Active Substance: AMIODARONE HYDROCHLORIDE
     Indication: Atrial fibrillation
     Dosage: 100 MG, Q24H
     Route: 065
     Dates: start: 20211001, end: 20220218
  8. IVABRADINE [Concomitant]
     Active Substance: IVABRADINE
     Indication: Cardiac failure
     Dosage: 5 MG, Q24H
     Route: 065
     Dates: start: 20211001, end: 20220218

REACTIONS (3)
  - Hyperkalaemia [Recovering/Resolving]
  - Acute kidney injury [Recovering/Resolving]
  - Labelled drug-disease interaction issue [Recovering/Resolving]

NARRATIVE: CASE EVENT DATE: 20220218
